FAERS Safety Report 8917795 (Version 3)
Quarter: 2013Q1

REPORT INFORMATION
  Report Type: Spontaneous
  Country: GR (occurrence: GR)
  Receive Date: 20121120
  Receipt Date: 20130130
  Transmission Date: 20140127
  Serious: Yes (Death, Life-Threatening, Hospitalization)
  Sender: FDA-Public Use
  Company Number: GR-US-EMD SERONO, INC.-7174998

PATIENT
  Age: 49 Year
  Sex: Female

DRUGS (5)
  1. REBIF [Suspect]
     Indication: MULTIPLE SCLEROSIS
     Route: 058
     Dates: start: 2011, end: 20121114
  2. EFFEXOR [Concomitant]
     Indication: DEPRESSION
     Route: 048
     Dates: end: 20121113
  3. DITROPAN [Concomitant]
     Indication: URINARY INCONTINENCE
     Dates: end: 20121113
  4. ANTIDEPRESSANTS [Concomitant]
     Indication: DEPRESSION
  5. VITAMINS [Concomitant]
     Indication: PRODUCT USED FOR UNKNOWN INDICATION

REACTIONS (9)
  - Cerebral haemorrhage [Fatal]
  - Myocarditis [Fatal]
  - Respiratory tract infection [Fatal]
  - Haemolysis [Fatal]
  - Coma [Recovering/Resolving]
  - Encephalitis [Unknown]
  - Thrombocytopenia [Fatal]
  - Convulsion [Recovering/Resolving]
  - Pyrexia [Recovered/Resolved]
